FAERS Safety Report 12191084 (Version 5)
Quarter: 2018Q2

REPORT INFORMATION
  Report Type: Report from Study
  Country: BR (occurrence: BR)
  Receive Date: 20160318
  Receipt Date: 20180502
  Transmission Date: 20180711
  Serious: Yes (Hospitalization, Other)
  Sender: FDA-Public Use
  Company Number: BR-JNJFOC-20160310892

PATIENT
  Age: 31 Year
  Sex: Female
  Weight: 54 kg

DRUGS (4)
  1. REMICADE [Suspect]
     Active Substance: INFLIXIMAB
     Indication: COLITIS ULCERATIVE
     Route: 042
  2. REMICADE [Suspect]
     Active Substance: INFLIXIMAB
     Indication: COLITIS ULCERATIVE
     Route: 042
     Dates: start: 201704
  3. REMICADE [Suspect]
     Active Substance: INFLIXIMAB
     Indication: COLITIS ULCERATIVE
     Route: 042
  4. REMICADE [Suspect]
     Active Substance: INFLIXIMAB
     Indication: COLITIS ULCERATIVE
     Route: 042
     Dates: start: 201510, end: 201512

REACTIONS (14)
  - Myalgia [Recovered/Resolved]
  - Gastrointestinal disorder [Unknown]
  - Back pain [Not Recovered/Not Resolved]
  - Product use issue [Unknown]
  - Weight increased [Unknown]
  - Decreased immune responsiveness [Unknown]
  - Pain in extremity [Not Recovered/Not Resolved]
  - Off label use [Unknown]
  - Diarrhoea [Recovered/Resolved]
  - Drug ineffective [Not Recovered/Not Resolved]
  - Pyrexia [Not Recovered/Not Resolved]
  - Haematochezia [Not Recovered/Not Resolved]
  - Peripheral swelling [Not Recovered/Not Resolved]
  - Abdominal pain upper [Recovered/Resolved]

NARRATIVE: CASE EVENT DATE: 201510
